FAERS Safety Report 25390324 (Version 1)
Quarter: 2025Q2

REPORT INFORMATION
  Report Type: Other
  Country: HU (occurrence: HU)
  Receive Date: 20250603
  Receipt Date: 20250603
  Transmission Date: 20250717
  Serious: Yes (Hospitalization, Other)
  Sender: STRIDES
  Company Number: HU-EMA-DD-20230515-7207990-121452

PATIENT
  Age: 15 Year
  Sex: Male

DRUGS (3)
  1. VANCOMYCIN [Suspect]
     Active Substance: VANCOMYCIN
     Indication: Osteomyelitis acute
     Route: 065
  2. CLINDAMYCIN [Suspect]
     Active Substance: CLINDAMYCIN
     Indication: Staphylococcal osteomyelitis
     Route: 042
  3. CLINDAMYCIN [Suspect]
     Active Substance: CLINDAMYCIN
     Indication: Staphylococcal osteomyelitis
     Route: 048

REACTIONS (9)
  - C-reactive protein increased [Recovering/Resolving]
  - Fasciitis [Recovered/Resolved]
  - Necrotising soft tissue infection [Recovered/Resolved]
  - Bone disorder [Recovered/Resolved]
  - Resorption bone increased [Recovered/Resolved]
  - Bone abscess [Recovered/Resolved]
  - Abscess limb [Recovering/Resolving]
  - Pathogen resistance [Unknown]
  - Drug resistance [Unknown]
